FAERS Safety Report 6805921-8 (Version None)
Quarter: 2010Q2

REPORT INFORMATION
  Report Type: 
  Country: None (occurrence: None)
  Receive Date: 20100629
  Receipt Date: 20071023
  Transmission Date: 20101027
  Serious: No
  Sender: FDA-Public Use
  Company Number: US-PFIZER INC-2007089059

PATIENT
  Sex: Female
  Weight: 50 kg

DRUGS (3)
  1. ZYVOX [Suspect]
     Indication: SKIN INFECTION
  2. RIFAMPIN [Concomitant]
  3. GENTAMICIN [Concomitant]

REACTIONS (1)
  - NEUROPATHY PERIPHERAL [None]
